FAERS Safety Report 9688031 (Version 1)
Quarter: 2013Q4

REPORT INFORMATION
  Report Type: Spontaneous
  Country: AT (occurrence: AT)
  Receive Date: 20131114
  Receipt Date: 20131114
  Transmission Date: 20140711
  Serious: Yes (Other)
  Sender: FDA-Public Use
  Company Number: AT-ASTELLAS-2013EU009850

PATIENT
  Age: 43 Year
  Sex: Male

DRUGS (3)
  1. XTANDI [Suspect]
     Dosage: 160 MG, UID/QD
     Route: 048
  2. RISPERDAL [Concomitant]
     Dosage: 1 MG, UNKNOWN/D
     Route: 065
  3. CALCIUM D                          /00944201/ [Concomitant]
     Dosage: UNK
     Route: 065

REACTIONS (3)
  - Somnolence [Unknown]
  - Fear [Unknown]
  - Dyspnoea [Unknown]
